FAERS Safety Report 12472169 (Version 2)
Quarter: 2016Q3

REPORT INFORMATION
  Report Type: Spontaneous
  Country: US (occurrence: US)
  Receive Date: 20160616
  Receipt Date: 20160720
  Transmission Date: 20161109
  Serious: Yes (Other)
  Sender: FDA-Public Use
  Company Number: US-PFIZER INC-2016301714

PATIENT
  Sex: Female

DRUGS (1)
  1. CORTISONE ACETATE. [Suspect]
     Active Substance: CORTISONE ACETATE
     Indication: INFLAMMATION
     Dosage: AT LEAST TWICE A WEEK
     Dates: end: 2016

REACTIONS (2)
  - Glaucoma [Unknown]
  - Condition aggravated [Unknown]
